FAERS Safety Report 22356642 (Version 2)
Quarter: 2023Q2

REPORT INFORMATION
  Report Type: Other
  Country: CA (occurrence: None)
  Receive Date: 20230523
  Receipt Date: 20230529
  Transmission Date: 20230721
  Serious: Yes (Hospitalization, Other)
  Sender: FDA-Public Use
  Company Number: CA-ROCHE-3352771

PATIENT
  Age: 48 Year
  Sex: Female
  Weight: 67.9 kg

DRUGS (1)
  1. OCREVUS [Suspect]
     Active Substance: OCRELIZUMAB
     Indication: Relapsing-remitting multiple sclerosis
     Dosage: 300 MG AT DAY 0 AND 14, THEN 600 MG EVERY 6 MONTH
     Route: 042
     Dates: start: 20230503

REACTIONS (3)
  - Seizure [Recovering/Resolving]
  - Fatigue [Unknown]
  - Blindness [Unknown]

NARRATIVE: CASE EVENT DATE: 20230515
